FAERS Safety Report 6115015-5 (Version None)
Quarter: 2009Q1

REPORT INFORMATION
  Report Type: 
  Country: None (occurrence: None)
  Receive Date: 20090313
  Receipt Date: 20090309
  Transmission Date: 20090719
  Serious: Yes (Other)
  Sender: FDA-Public Use
  Company Number: A0772091A

PATIENT
  Age: 62 Year
  Sex: Female

DRUGS (6)
  1. CARVEDILOL [Suspect]
     Dosage: 25MG TWICE PER DAY
     Route: 048
     Dates: start: 20090201, end: 20090201
  2. PAXIL [Concomitant]
  3. MUSCLE RELAXER [Concomitant]
  4. AMBIEN [Concomitant]
  5. FENTANYL TRANSDERMAL SYSTEM [Concomitant]
  6. DILAUDID [Concomitant]

REACTIONS (1)
  - HALLUCINATION [None]
